FAERS Safety Report 5270590-8 (Version None)
Quarter: 2007Q1

REPORT INFORMATION
  Report Type: 
  Country: None (occurrence: None)
  Receive Date: 20070315
  Receipt Date: 20070307
  Transmission Date: 20070707
  Serious: Yes (Other)
  Sender: FDA-Public Use
  Company Number: 153760USA

PATIENT
  Age: 49 Year
  Sex: Male

DRUGS (2)
  1. ETOPOSIDE [Suspect]
     Dosage: (60 MG/M2)
  2. METHOTREXATE [Suspect]
     Dosage: (15 MG/M2)

REACTIONS (1)
  - RECALL PHENOMENON [None]
